FAERS Safety Report 6116460-4 (Version None)
Quarter: 2009Q1

REPORT INFORMATION
  Report Type: 
  Country: None (occurrence: None)
  Receive Date: 20090314
  Receipt Date: 20081216
  Transmission Date: 20090719
  Serious: No
  Sender: FDA-Public Use
  Company Number: US-ABBOTT-08P-163-0493419-00

PATIENT
  Sex: Female
  Weight: 64.014 kg

DRUGS (10)
  1. HUMIRA [Suspect]
     Indication: CROHN'S DISEASE
     Route: 058
     Dates: start: 20080201, end: 20081101
  2. HUMIRA [Suspect]
     Dosage: 1 IN 1 WEEK
     Route: 058
     Dates: start: 20081101
  3. ASACOL [Concomitant]
     Indication: CROHN'S DISEASE
     Dates: start: 20050101
  4. ACIPHEX [Concomitant]
     Indication: CROHN'S DISEASE
  5. EFFEXOR [Concomitant]
     Indication: MOOD DISORDER DUE TO A GENERAL MEDICAL CONDITION
  6. EFFEXOR [Concomitant]
     Indication: ANXIETY DISORDER DUE TO A GENERAL MEDICAL CONDITION
  7. EFFEXOR [Concomitant]
     Indication: STRESS
  8. BIRTH CONTROL [Concomitant]
     Indication: CONTRACEPTION
  9. LOMOTIL [Concomitant]
     Indication: DIARRHOEA
  10. METOCLOPRAMIDE HYDROCHLORIDE [Concomitant]
     Indication: NAUSEA

REACTIONS (3)
  - CROHN'S DISEASE [None]
  - NAUSEA [None]
  - WEIGHT DECREASED [None]
